FAERS Safety Report 5098054-5 (Version None)
Quarter: 2006Q3

REPORT INFORMATION
  Report Type: 
  Country: None (occurrence: None)
  Receive Date: 20060906
  Receipt Date: 20060331
  Transmission Date: 20061208
  Serious: No
  Sender: FDA-Public Use
  Company Number: US-GLAXOSMITHKLINE-A0599905A

PATIENT
  Age: 44 Year
  Sex: Female

DRUGS (3)
  1. REQUIP [Suspect]
     Indication: RESTLESS LEGS SYNDROME
     Dosage: 4MG PER DAY
     Route: 048
     Dates: start: 20060317, end: 20060331
  2. PROTONIX [Concomitant]
  3. ZETIA [Concomitant]

REACTIONS (9)
  - ABDOMINAL PAIN [None]
  - ARTHRALGIA [None]
  - FEELING HOT [None]
  - HEART RATE INCREASED [None]
  - ILL-DEFINED DISORDER [None]
  - INFLUENZA LIKE ILLNESS [None]
  - NAUSEA [None]
  - VERTIGO [None]
  - VOMITING [None]
